FAERS Safety Report 7399121-3 (Version None)
Quarter: 2011Q2

REPORT INFORMATION
  Report Type: 
  Country: None (occurrence: None)
  Receive Date: 20110407
  Receipt Date: 20110330
  Transmission Date: 20111010
  Serious: Yes (Life-Threatening, Hospitalization)
  Sender: FDA-Public Use
  Company Number: GB-SANOFI-AVENTIS-2011SA019781

PATIENT
  Age: 53 Year
  Sex: Male

DRUGS (4)
  1. LEFLUNOMIDE [Suspect]
     Indication: RHEUMATOID ARTHRITIS
     Route: 048
     Dates: start: 20110112, end: 20110205
  2. DICLOFENAC [Concomitant]
  3. INVESTIGATIONAL DRUG [Concomitant]
     Indication: RHEUMATOID ARTHRITIS
  4. OMEPRAZOLE [Concomitant]

REACTIONS (3)
  - ACUTE HEPATIC FAILURE [None]
  - SEPSIS [None]
  - RENAL FAILURE ACUTE [None]
